FAERS Safety Report 22652581 (Version 1)
Quarter: 2023Q2

REPORT INFORMATION
  Report Type: Report from Study
  Country: CA (occurrence: CA)
  Receive Date: 20230629
  Receipt Date: 20230629
  Transmission Date: 20230722
  Serious: Yes (Death)
  Sender: FDA-Public Use
  Company Number: CA-APIL-2314594US

PATIENT
  Age: 68 Year
  Sex: Male

DRUGS (4)
  1. BOTOX [Suspect]
     Active Substance: ONABOTULINUMTOXINA
     Indication: Arthralgia
     Dosage: TIME INTERVAL: AS NECESSARY
     Route: 030
     Dates: start: 20221104, end: 20221104
  2. BOTOX [Suspect]
     Active Substance: ONABOTULINUMTOXINA
     Indication: Arthralgia
     Dosage: TIME INTERVAL: AS NECESSARY
     Route: 030
     Dates: start: 20221104, end: 20221104
  3. BOTOX [Suspect]
     Active Substance: ONABOTULINUMTOXINA
     Indication: Arthralgia
     Dosage: TIME INTERVAL: AS NECESSARY
     Route: 030
     Dates: start: 20221104, end: 20221104
  4. BOTOX [Suspect]
     Active Substance: ONABOTULINUMTOXINA
     Indication: Arthralgia
     Dosage: TIME INTERVAL: AS NECESSARY
     Route: 030
     Dates: start: 20221104, end: 20221104

REACTIONS (2)
  - Death [Fatal]
  - Therapeutic product effect incomplete [Unknown]

NARRATIVE: CASE EVENT DATE: 20230313
